FAERS Safety Report 10042622 (Version 1)
Quarter: 2014Q1

REPORT INFORMATION
  Report Type: Spontaneous
  Country: US (occurrence: None)
  Receive Date: 20140325
  Receipt Date: 20140325
  Transmission Date: 20141002
  Serious: Yes (Other)
  Sender: FDA-Public Use
  Company Number: 2014-00047

PATIENT
  Age: 49 Year
  Sex: Male
  Weight: 78.02 kg

DRUGS (2)
  1. ZICAM COLD REMEDY NASAL GEL [Suspect]
     Route: 045
     Dates: start: 2001
  2. ZICAM COLD REMEDY GEL SWABS [Suspect]

REACTIONS (3)
  - Sleep apnoea syndrome [None]
  - Anosmia [None]
  - Ageusia [None]
